FAERS Safety Report 17342634 (Version 1)
Quarter: 2020Q1

REPORT INFORMATION
  Report Type: Spontaneous
  Country: US (occurrence: US)
  Receive Date: 20200129
  Receipt Date: 20200129
  Transmission Date: 20200409
  Serious: No
  Sender: FDA-Public Use
  Company Number: US-ALLERGAN-1932276US

PATIENT
  Age: 56 Year
  Sex: Female

DRUGS (3)
  1. BOTOX COSMETIC [Suspect]
     Active Substance: ONABOTULINUMTOXINA
     Indication: SKIN WRINKLING
     Dosage: ACTUAL: 2 SITES WITH 1.5 UNITS EACH
     Route: 065
     Dates: start: 20190725, end: 20190725
  2. BOTOX COSMETIC [Suspect]
     Active Substance: ONABOTULINUMTOXINA
     Indication: SKIN WRINKLING
     Dosage: 30 UNITS, SINGLE
     Route: 065
     Dates: start: 20190725, end: 20190725
  3. BOTOX COSMETIC [Suspect]
     Active Substance: ONABOTULINUMTOXINA
     Indication: SKIN WRINKLING
     Dosage: ACTUAL: 2 SITES WITH 4 UNITS EACH
     Route: 065
     Dates: start: 20190725, end: 20190725

REACTIONS (4)
  - Off label use [Unknown]
  - Drug ineffective [Unknown]
  - Poor quality product administered [Unknown]
  - Product preparation error [Unknown]
